FAERS Safety Report 7448959-2 (Version None)
Quarter: 2011Q2

REPORT INFORMATION
  Report Type: 
  Country: None (occurrence: None)
  Receive Date: 20110429
  Receipt Date: 20090622
  Transmission Date: 20111010
  Serious: Yes (Hospitalization, Other)
  Sender: FDA-Public Use
  Company Number: DE-GENENTECH-317735

PATIENT
  Age: 87 Year
  Sex: Female

DRUGS (1)
  1. LUCENTIS [Suspect]
     Indication: MACULAR DEGENERATION
     Dosage: UNK
     Route: 031
     Dates: start: 20090311

REACTIONS (6)
  - VISUAL ACUITY REDUCED [None]
  - CONJUNCTIVITIS INFECTIVE [None]
  - GASTRIC ULCER PERFORATION [None]
  - HORDEOLUM [None]
  - EYE HAEMORRHAGE [None]
  - HAEMORRHAGE [None]
